FAERS Safety Report 23667433 (Version 1)
Quarter: 2024Q1

REPORT INFORMATION
  Report Type: Spontaneous
  Country: GR (occurrence: GR)
  Receive Date: 20240325
  Receipt Date: 20240325
  Transmission Date: 20240410
  Serious: Yes (Death, Hospitalization, Other)
  Sender: FDA-Public Use
  Company Number: GR-HALEON-GRCH2024EME015006

PATIENT

DRUGS (2)
  1. DICLOFENAC [Suspect]
     Active Substance: DICLOFENAC
     Indication: Musculoskeletal pain
     Dosage: 50 MG, BID
     Route: 048
  2. QUINAPRIL [Concomitant]
     Active Substance: QUINAPRIL
     Indication: Hypertension
     Dosage: UNK

REACTIONS (8)
  - Autoimmune hepatitis [Fatal]
  - Hepatitis [Fatal]
  - Abdominal pain upper [Unknown]
  - Jaundice [Unknown]
  - Nausea [Unknown]
  - Vomiting [Unknown]
  - Hepatosplenomegaly [Unknown]
  - Respiratory alkalosis [Unknown]
